FAERS Safety Report 7057321-6 (Version None)
Quarter: 2010Q4

REPORT INFORMATION
  Report Type: 
  Country: None (occurrence: None)
  Receive Date: 20101022
  Receipt Date: 20101020
  Transmission Date: 20110411
  Serious: Yes (Hospitalization)
  Sender: FDA-Public Use
  Company Number: DE-BRISTOL-MYERS SQUIBB COMPANY-15339658

PATIENT
  Age: 18 Year
  Sex: Female

DRUGS (6)
  1. CISPLATIN [Suspect]
     Indication: NASOPHARYNGEAL CANCER
     Dosage: INITIAL 100MG/M SUP(2)DOSE REDUCED TO 70MG/M SUP(2),20MG/M SUP(2)DAYS 1-3.
  2. FLUOROURACIL [Suspect]
     Indication: NASOPHARYNGEAL CANCER
     Dosage: 1000 MG/M SUP(2)
  3. LEUCOVORIN CALCIUM [Concomitant]
     Indication: NASOPHARYNGEAL CANCER
  4. DEXAMETHASONE [Concomitant]
  5. ONDANSETRON [Concomitant]
  6. APREPITANT [Concomitant]

REACTIONS (3)
  - AORTIC EMBOLUS [None]
  - FEMORAL ARTERY EMBOLISM [None]
  - MUCOSAL INFLAMMATION [None]
